FAERS Safety Report 21567792 (Version 1)
Quarter: 2022Q4

REPORT INFORMATION
  Report Type: Report from Study
  Country: CN (occurrence: CN)
  Receive Date: 20221108
  Receipt Date: 20221108
  Transmission Date: 20230112
  Serious: Yes (Life-Threatening)
  Sender: FDA-Public Use
  Company Number: CN-ELI_LILLY_AND_COMPANY-CN202211001816

PATIENT

DRUGS (6)
  1. PEMETREXED [Suspect]
     Active Substance: PEMETREXED
     Indication: Non-small cell lung cancer
     Dosage: 500 MG/M2, BETWEEN DAYS 15 AND 21 AND CONTINUED UNTIL DISEASE PROGRESSION
     Route: 065
  2. CATEQUENTINIB [Suspect]
     Active Substance: CATEQUENTINIB
     Indication: Non-small cell lung cancer
     Dosage: 12 MG, ONCE PER DAY FOR 2 WEEKS AND A WEEK OFF, WITH A THREE WEEKS CYCLE
     Route: 065
  3. CARBOPLATIN [Suspect]
     Active Substance: CARBOPLATIN
     Indication: Non-small cell lung cancer
     Dosage: UNK, 3 WEEKS CYCLE
     Route: 065
  4. DEXAMETHASONE [Concomitant]
     Active Substance: DEXAMETHASONE
     Dosage: UNK, UNKNOWN
     Route: 065
  5. FOLIC ACID [Concomitant]
     Active Substance: FOLIC ACID
     Dosage: UNK, UNKNOWN
     Route: 065
  6. COBAMAMIDE [Concomitant]
     Active Substance: COBAMAMIDE
     Dosage: UNK, UNKNOWN
     Route: 065

REACTIONS (1)
  - Asthenia [Unknown]
